FAERS Safety Report 6905309-5 (Version None)
Quarter: 2010Q3

REPORT INFORMATION
  Report Type: 
  Country: None (occurrence: None)
  Receive Date: 20100804
  Receipt Date: 20100721
  Transmission Date: 20110219
  Serious: Yes (Hospitalization)
  Sender: FDA-Public Use
  Company Number: IT-RANBAXY-2010RR-36518

PATIENT
  Sex: Male

DRUGS (3)
  1. GABAPENTIN [Suspect]
     Dosage: 300 MG, UNK
     Route: 048
  2. HALDOL [Suspect]
     Dosage: 2 MG/ML
     Route: 048
  3. LORAZEPAM HEXAL [Suspect]
     Dosage: 2.5 MG, UNK
     Route: 048

REACTIONS (1)
  - SUICIDE ATTEMPT [None]
